FAERS Safety Report 12220183 (Version 1)
Quarter: 2016Q1

REPORT INFORMATION
  Report Type: Spontaneous
  Country: US (occurrence: None)
  Receive Date: 20160329
  Receipt Date: 20160329
  Transmission Date: 20160526
  Serious: Yes (Hospitalization)
  Sender: FDA-Public Use
  Company Number: None

PATIENT
  Age: 18 Year
  Sex: Female
  Weight: 58.1 kg

DRUGS (6)
  1. ONCASPAR [Suspect]
     Active Substance: PEGASPARGASE
     Dates: end: 20160303
  2. PREDNISONE. [Suspect]
     Active Substance: PREDNISONE
     Dates: end: 20160314
  3. VINCRISTINE SULFATE. [Suspect]
     Active Substance: VINCRISTINE SULFATE
     Dates: end: 20160315
  4. CYTARABINE. [Suspect]
     Active Substance: CYTARABINE
     Dates: end: 20160228
  5. METHOTREXATE [Suspect]
     Active Substance: METHOTREXATE
     Dates: end: 20160308
  6. DAUNORUBICIN [Suspect]
     Active Substance: DAUNORUBICIN
     Dates: end: 20160315

REACTIONS (5)
  - Abdominal discomfort [None]
  - Abdominal pain [None]
  - Abdominal distension [None]
  - Constipation [None]
  - Appendicitis perforated [None]

NARRATIVE: CASE EVENT DATE: 20160318
